FAERS Safety Report 8887545 (Version 1)
Quarter: 2012Q4

REPORT INFORMATION
  Report Type: Spontaneous
  Country: US (occurrence: None)
  Receive Date: 20121101
  Receipt Date: 20121101
  Transmission Date: 20130627
  Serious: No
  Sender: FDA-Public Use
  Company Number: None

PATIENT
  Age: 26 Year
  Sex: Male

DRUGS (1)
  1. AVONEX [Suspect]
     Indication: MULTIPLE SCLEROSIS
     Dosage: 30mcg qweek im
     Route: 030
     Dates: start: 20120913, end: 20121024

REACTIONS (2)
  - Hypoaesthesia [None]
  - Sensation of pressure [None]
